FAERS Safety Report 8613473-5 (Version None)
Quarter: 2012Q3

REPORT INFORMATION
  Report Type: 
  Country: None (occurrence: None)
  Receive Date: 20120823
  Receipt Date: 20120807
  Transmission Date: 20120928
  Serious: Yes (Hospitalization, Disabling, Other)
  Sender: FDA-Public Use
  Company Number: US-009507513-1012USA02522

PATIENT

DRUGS (2)
  1. FOSAMAX [Suspect]
     Indication: OSTEOPOROSIS
     Dosage: 70 MG, QW
     Route: 048
     Dates: start: 19970301, end: 20091117
  2. FOSAMAX [Suspect]
     Dosage: 70 MG, QW
     Route: 048
     Dates: start: 20080410, end: 20081202

REACTIONS (61)
  - BACK DISORDER [None]
  - LIGAMENT SPRAIN [None]
  - MYALGIA [None]
  - URINARY TRACT INFECTION [None]
  - INTERVERTEBRAL DISC PROTRUSION [None]
  - CHEST PAIN [None]
  - APPENDIX DISORDER [None]
  - TENOSYNOVITIS [None]
  - SCOLIOSIS [None]
  - OSTEOPOROSIS [None]
  - CORNEAL ABRASION [None]
  - EAR DISORDER [None]
  - ADVERSE EVENT [None]
  - ROTATOR CUFF SYNDROME [None]
  - ATROPHIC VULVOVAGINITIS [None]
  - PERIPROSTHETIC FRACTURE [None]
  - MASTOID DISORDER [None]
  - HYPERCHOLESTEROLAEMIA [None]
  - HYPERLIPIDAEMIA [None]
  - JOINT EFFUSION [None]
  - SPINAL OSTEOARTHRITIS [None]
  - BREAST CANCER [None]
  - IMPAIRED HEALING [None]
  - MULTIPLE FRACTURES [None]
  - HYPERTENSION [None]
  - VITAMIN D DEFICIENCY [None]
  - GASTRITIS [None]
  - AORTIC STENOSIS [None]
  - HAEMORRHOIDS [None]
  - ABDOMINAL PAIN [None]
  - EPISTAXIS [None]
  - NAUSEA [None]
  - LUMBAR RADICULOPATHY [None]
  - BLADDER MASS [None]
  - STRESS URINARY INCONTINENCE [None]
  - FEMUR FRACTURE [None]
  - HIP FRACTURE [None]
  - FRACTURE [None]
  - OSTEOPENIA [None]
  - GASTROOESOPHAGEAL REFLUX DISEASE [None]
  - HYPERTENSIVE HEART DISEASE [None]
  - RETINAL DETACHMENT [None]
  - BRONCHITIS [None]
  - FALL [None]
  - CONTUSION [None]
  - CERVICOBRACHIAL SYNDROME [None]
  - MAMMOGRAM ABNORMAL [None]
  - LOW TURNOVER OSTEOPATHY [None]
  - FRACTURE NONUNION [None]
  - DEVICE DISLOCATION [None]
  - CARPAL TUNNEL SYNDROME [None]
  - OSTEOARTHRITIS [None]
  - EAR INFECTION [None]
  - HAEMATOCRIT DECREASED [None]
  - MEDICAL DEVICE COMPLICATION [None]
  - DEVICE MATERIAL ISSUE [None]
  - CERVICAL SPINAL STENOSIS [None]
  - HYPERTENSIVE NEPHROPATHY [None]
  - RETINAL TEAR [None]
  - PARAESTHESIA [None]
  - CHRONIC OBSTRUCTIVE PULMONARY DISEASE [None]
